FAERS Safety Report 4486314-8 (Version None)
Quarter: 2004Q3

REPORT INFORMATION
  Report Type: 
  Country: None (occurrence: None)
  Receive Date: 20040921
  Receipt Date: 20040506
  Transmission Date: 20050211
  Serious: Yes (Death)
  Sender: FDA-Public Use
  Company Number: 163-20785-04050123(0)

PATIENT
  Age: 52 Year
  Sex: Male

DRUGS (3)
  1. THALOMID [Suspect]
     Indication: MULTIPLE MYELOMA
     Dosage: 800 MG, DAILY, ORAL
     Route: 048
     Dates: start: 20030702, end: 20040101
  2. THALOMID [Suspect]
  3. THALOMID [Suspect]

REACTIONS (1)
  - DEATH [None]
